FAERS Safety Report 4277834-X (Version None)
Quarter: 2004Q1

REPORT INFORMATION
  Report Type: 
  Country: None (occurrence: None)
  Receive Date: 20040121
  Receipt Date: 20040111
  Transmission Date: 20041129
  Serious: Yes (Hospitalization)
  Sender: FDA-Public Use
  Company Number: 2004193932TH

PATIENT
  Sex: Female

DRUGS (2)
  1. CELEBREX [Suspect]
     Indication: PAIN IN EXTREMITY
     Dosage: 200 MG, ORAL
     Route: 048
     Dates: start: 20031201
  2. CELEBREX [Suspect]
     Indication: PAIN IN EXTREMITY
     Dosage: 200 MG, ORAL
     Route: 048
     Dates: start: 20040104

REACTIONS (5)
  - ABDOMINAL PAIN [None]
  - ALVEOLITIS ALLERGIC [None]
  - NAUSEA [None]
  - PYREXIA [None]
  - VOMITING [None]
